FAERS Safety Report 18683257 (Version 3)
Quarter: 2021Q1

REPORT INFORMATION
  Report Type: Spontaneous
  Country: US (occurrence: US)
  Receive Date: 20201230
  Receipt Date: 20210108
  Transmission Date: 20210419
  Serious: Yes (Other)
  Sender: FDA-Public Use
  Company Number: US-ASTRAZENECA-2020SF66742

PATIENT
  Age: 21502 Day
  Sex: Male
  Weight: 95.3 kg

DRUGS (12)
  1. METOPROLOL SUCCINATE. [Suspect]
     Active Substance: METOPROLOL SUCCINATE
     Indication: PRODUCT USED FOR UNKNOWN INDICATION
     Route: 065
  2. LOSARTAN POTASSIUM. [Suspect]
     Active Substance: LOSARTAN POTASSIUM
     Dosage: DAILY
     Route: 065
  3. ATORVASTATIN [Concomitant]
     Active Substance: ATORVASTATIN
     Dosage: DAILY
  4. ZINC. [Concomitant]
     Active Substance: ZINC
  5. METOPROLOL. [Suspect]
     Active Substance: METOPROLOL
     Dosage: DAILY
     Route: 065
  6. BRILINTA [Suspect]
     Active Substance: TICAGRELOR
     Indication: MYOCARDIAL INFARCTION
     Route: 048
     Dates: start: 201903
  7. BRILINTA [Suspect]
     Active Substance: TICAGRELOR
     Indication: STENT PLACEMENT
     Route: 048
     Dates: start: 201903
  8. CENTRUM SILVER MULTIVITAMIN [Concomitant]
  9. ASPIRIN. [Concomitant]
     Active Substance: ASPIRIN
     Route: 048
  10. FUROSEMIDE. [Suspect]
     Active Substance: FUROSEMIDE
     Indication: DIURETIC THERAPY
     Dosage: 20.0MG UNKNOWN
     Route: 065
  11. METFORMIN [Concomitant]
     Active Substance: METFORMIN HYDROCHLORIDE
     Dosage: TWO TIMES A DAY
  12. VITAMIN C [Concomitant]
     Active Substance: ASCORBIC ACID

REACTIONS (34)
  - Myalgia [Unknown]
  - Pain [Unknown]
  - Rash [Unknown]
  - Arthralgia [Unknown]
  - Pain [Unknown]
  - Atypical pneumonia [Not Recovered/Not Resolved]
  - Productive cough [Unknown]
  - Haemoptysis [Not Recovered/Not Resolved]
  - Pyrexia [Unknown]
  - Decreased activity [Unknown]
  - Renal pain [Unknown]
  - Bronchitis [Unknown]
  - SARS-CoV-2 test positive [Recovering/Resolving]
  - Cough [Not Recovered/Not Resolved]
  - Chills [Unknown]
  - Pain in extremity [Unknown]
  - Headache [Recovered/Resolved]
  - Rib fracture [Unknown]
  - Decreased appetite [Unknown]
  - Weight decreased [Unknown]
  - Feeling drunk [Unknown]
  - Diarrhoea [Recovered/Resolved]
  - Intestinal haemorrhage [Recovered/Resolved]
  - Cold sweat [Unknown]
  - Arthropathy [Unknown]
  - Rhonchi [Unknown]
  - Rhinorrhoea [Unknown]
  - Chest discomfort [Unknown]
  - Product dose omission issue [Unknown]
  - Fall [Unknown]
  - Joint dislocation [Unknown]
  - Nasopharyngitis [Unknown]
  - Rales [Unknown]
  - Burning sensation [Unknown]

NARRATIVE: CASE EVENT DATE: 20201101
